FAERS Safety Report 4411319-2 (Version None)
Quarter: 2004Q3

REPORT INFORMATION
  Report Type: 
  Country: None (occurrence: None)
  Receive Date: 20040727
  Receipt Date: 20040719
  Transmission Date: 20050211
  Serious: No
  Sender: FDA-Public Use
  Company Number: 2004-118664-NL

PATIENT
  Age: 77 Year
  Sex: Female

DRUGS (8)
  1. MIRTAZAPINE [Suspect]
     Indication: INSOMNIA
     Dosage: ORAL
     Route: 048
     Dates: start: 20040623, end: 20040702
  2. TOLBUTAMIDE [Concomitant]
  3. GAVISCON [Concomitant]
  4. METFORMIN HCL [Concomitant]
  5. LOSARTAN POTASSIUM [Concomitant]
  6. SIMVASTATIN [Concomitant]
  7. FRUSEMIDE [Concomitant]
  8. AMOXICILLIN [Concomitant]

REACTIONS (1)
  - BLOOD GLUCOSE INCREASED [None]
